FAERS Safety Report 9352344 (Version 1)
Quarter: 2013Q2

REPORT INFORMATION
  Report Type: Report from Study
  Country: DE (occurrence: DE)
  Receive Date: 20130617
  Receipt Date: 20130617
  Transmission Date: 20140414
  Serious: Yes (Hospitalization)
  Sender: FDA-Public Use
  Company Number: DE-ABBOTT-13P-062-1105892-00

PATIENT
  Age: 61 Year
  Sex: Female
  Weight: 75 kg

DRUGS (5)
  1. HUMIRA [Suspect]
     Indication: PSORIATIC ARTHROPATHY
     Route: 058
     Dates: start: 200911, end: 20130201
  2. METHOTREXATE [Concomitant]
     Indication: PSORIATIC ARTHROPATHY
     Route: 048
     Dates: start: 2003, end: 2013
  3. PREDNISOLONE [Concomitant]
     Indication: PSORIATIC ARTHROPATHY
     Route: 048
  4. IBUPROFEN [Concomitant]
     Indication: PSORIATIC ARTHROPATHY
     Route: 048
     Dates: start: 2005
  5. METAMIZOLE [Concomitant]
     Indication: PRODUCT USED FOR UNKNOWN INDICATION

REACTIONS (2)
  - Meniscus injury [Recovered/Resolved]
  - Chondropathy [Unknown]
